FAERS Safety Report 6432549-4 (Version None)
Quarter: 2009Q4

REPORT INFORMATION
  Report Type: 
  Country: None (occurrence: None)
  Receive Date: 20091109
  Receipt Date: 20091102
  Transmission Date: 20100525
  Serious: Yes (Hospitalization)
  Sender: FDA-Public Use
  Company Number: DE-EISAI INC.-E7273-00109-SPO-DE

PATIENT
  Sex: Female

DRUGS (2)
  1. TARGRETIN [Suspect]
     Dosage: UNKNOWN
     Route: 065
  2. CORTISONE [Concomitant]
     Dosage: UNKNOWN

REACTIONS (1)
  - OSTEONECROSIS [None]
